FAERS Safety Report 6578698-1 (Version None)
Quarter: 2010Q1

REPORT INFORMATION
  Report Type: 
  Country: None (occurrence: None)
  Receive Date: 20100202
  Receipt Date: 20100119
  Transmission Date: 20100710
  Serious: Yes (Other)
  Sender: FDA-Public Use
  Company Number: 1000011572

PATIENT
  Age: 24 Year
  Sex: Female

DRUGS (2)
  1. CELEXA [Suspect]
     Dosage: 1 DOSAGE FORMS (1 DOSAGE FORMS, 1 IN 1 D)
  2. TRAMACET (TABLETS) [Suspect]
     Dosage: (1 DOSAGE FORMS, ONCE)

REACTIONS (2)
  - ABNORMAL BEHAVIOUR [None]
  - SEROTONIN SYNDROME [None]
